FAERS Safety Report 10045696 (Version 1)
Quarter: 2014Q1

REPORT INFORMATION
  Report Type: Spontaneous
  Country: US (occurrence: None)
  Receive Date: 20140306
  Receipt Date: 20140306
  Transmission Date: 20141002
  Serious: Yes (Hospitalization)
  Sender: FDA-Public Use
  Company Number: 163-21880-13060044

PATIENT
  Age: 59 Year
  Sex: Female

DRUGS (8)
  1. REVLIMID (LENALIDOMIDE) (25 MILLIGRAM, CAPSULES) [Suspect]
     Indication: PLASMA CELL MYELOMA
     Dosage: 21 IN 21 D
     Route: 048
     Dates: start: 20120914
  2. PRILOSEC (OMPERAZOLE) [Concomitant]
  3. LISINOPRIL (LISINOPRIL) [Concomitant]
  4. DEXAMETHASONE (DEXAMETHASONE) [Concomitant]
  5. CRESTOR (ROSUVASTATIN) [Concomitant]
  6. CEPHALEXIN (CEFALEXIN) [Concomitant]
  7. CALCIUM+D+K (NATURE MADE CALCIUM+D+K) [Concomitant]
  8. ACTOS (PIOGLITAZONE HYDROCHLORIDE) [Concomitant]

REACTIONS (1)
  - Pneumonia [None]
